FAERS Safety Report 7435216-3 (Version None)
Quarter: 2011Q2

REPORT INFORMATION
  Report Type: 
  Country: None (occurrence: None)
  Receive Date: 20110425
  Receipt Date: 20110404
  Transmission Date: 20111010
  Serious: No
  Sender: FDA-Public Use
  Company Number: US-B.I. PHARMACEUTICALS,INC./RIDGEFIELD-2011-BP-02247BP

PATIENT
  Sex: Female

DRUGS (5)
  1. SYNTHROID [Concomitant]
     Indication: HYPOTHYROIDISM
  2. PRADAXA [Suspect]
     Indication: ATRIAL FIBRILLATION
     Dosage: 300 MG
     Route: 048
     Dates: start: 20101201
  3. SOTALOL [Concomitant]
     Indication: ATRIAL FIBRILLATION
     Route: 048
  4. HYDROCHLOROTHIAZIDE [Concomitant]
     Route: 048
  5. CRESTOR [Concomitant]
     Indication: PROPHYLAXIS
     Route: 048

REACTIONS (5)
  - DYSPEPSIA [None]
  - URINARY TRACT INFECTION [None]
  - WOUND HAEMORRHAGE [None]
  - LACERATION [None]
  - BLOOD URINE PRESENT [None]
